FAERS Safety Report 5376171-X (Version None)
Quarter: 2007Q3

REPORT INFORMATION
  Report Type: 
  Country: None (occurrence: None)
  Receive Date: 20070702
  Receipt Date: 20070627
  Transmission Date: 20080115
  Serious: No
  Sender: FDA-Public Use
  Company Number: US-ASTRAZENECA-2007UW13669

PATIENT
  Age: 61 Year
  Sex: Female
  Weight: 59.9 kg

DRUGS (8)
  1. ARIMIDEX [Suspect]
     Indication: BREAST CANCER
     Route: 048
     Dates: start: 20060405
  2. GLAUCOMA MEDICATIONS [Concomitant]
  3. CLONIDINE [Concomitant]
  4. TOPAMAX [Concomitant]
  5. DYNASURK [Concomitant]
  6. PROTONIX [Concomitant]
  7. ASPIRIN [Concomitant]
  8. BENEDRYL [Concomitant]

REACTIONS (5)
  - ARTHRALGIA [None]
  - HYPERTENSION [None]
  - INTRAOCULAR PRESSURE INCREASED [None]
  - LABILE HYPERTENSION [None]
  - SPINAL OSTEOARTHRITIS [None]
